FAERS Safety Report 17098047 (Version 1)
Quarter: 2019Q4

REPORT INFORMATION
  Report Type: Spontaneous
  Country: US (occurrence: US)
  Receive Date: 20191105
  Receipt Date: 20191105
  Transmission Date: 20200122
  Serious: Yes (Hospitalization)
  Sender: FDA-Public Use
  Company Number: None

PATIENT
  Age: 52 Year

DRUGS (4)
  1. HUMIRA [Suspect]
     Active Substance: ADALIMUMAB
     Indication: CROHN^S DISEASE
     Dates: start: 20190207
  2. LIALDA [Concomitant]
     Active Substance: MESALAMINE
  3. IMVEXXY STRT SUP [Concomitant]
  4. MESALAMINE. [Concomitant]
     Active Substance: MESALAMINE

REACTIONS (2)
  - Breast operation [None]
  - Intentional dose omission [None]

NARRATIVE: CASE EVENT DATE: 20191014
